FAERS Safety Report 5097621-2 (Version None)
Quarter: 2006Q3

REPORT INFORMATION
  Report Type: 
  Country: None (occurrence: None)
  Receive Date: 20060901
  Receipt Date: 20060824
  Transmission Date: 20061208
  Serious: Yes (Other)
  Sender: FDA-Public Use
  Company Number: HQWYE948224AUG06

PATIENT
  Age: 16 Year
  Sex: Female

DRUGS (1)
  1. CORDAREX (AMIODARONE, INJECTION) [Suspect]
     Route: 042
     Dates: start: 20060101, end: 20060101

REACTIONS (2)
  - CONVULSION [None]
  - TACHYCARDIA [None]
